FAERS Safety Report 15283234 (Version 2)
Quarter: 2018Q3

REPORT INFORMATION
  Report Type: Spontaneous
  Country: US (occurrence: US)
  Receive Date: 20180816
  Receipt Date: 20180821
  Transmission Date: 20181010
  Serious: No
  Sender: FDA-Public Use
  Company Number: US-BAYER-2018-153573

PATIENT
  Age: 7 Year
  Sex: Male
  Weight: 22 kg

DRUGS (4)
  1. ZYRTEC [Concomitant]
     Active Substance: CETIRIZINE HYDROCHLORIDE
  2. CLARITIN [Suspect]
     Active Substance: LORATADINE
     Indication: NASOPHARYNGITIS
  3. ALLEGRA [Concomitant]
     Active Substance: FEXOFENADINE HYDROCHLORIDE
  4. CLARITIN [Suspect]
     Active Substance: LORATADINE
     Indication: ALLERGIC RESPIRATORY SYMPTOM
     Dosage: 1 DF, PRN
     Route: 048

REACTIONS (4)
  - Drug ineffective [Recovering/Resolving]
  - Asthma [Unknown]
  - Bronchial hyperreactivity [Recovered/Resolved]
  - Bronchial hyperreactivity [Recovered/Resolved]

NARRATIVE: CASE EVENT DATE: 201704
